FAERS Safety Report 8134942-0 (Version None)
Quarter: 2012Q1

REPORT INFORMATION
  Report Type: 
  Country: None (occurrence: None)
  Receive Date: 20120214
  Receipt Date: 20120210
  Transmission Date: 20120608
  Serious: Yes (Death)
  Sender: FDA-Public Use
  Company Number: US-PFIZER INC-2012037924

PATIENT
  Sex: Male

DRUGS (3)
  1. CELEBREX [Suspect]
  2. LIPITOR [Suspect]
  3. GLUCOTROL [Suspect]

REACTIONS (1)
  - DEATH [None]
